FAERS Safety Report 9104905 (Version 2)
Quarter: 2013Q1

REPORT INFORMATION
  Report Type: Spontaneous
  Country: US (occurrence: US)
  Receive Date: 20130220
  Receipt Date: 20130225
  Transmission Date: 20140127
  Serious: No
  Sender: FDA-Public Use
  Company Number: US-009507513-1302USA002786

PATIENT
  Age: 48 Year
  Sex: Male

DRUGS (2)
  1. RIZATRIPTAN BENZOATE [Suspect]
     Indication: MIGRAINE
     Dosage: 1 DF, PRN
     Route: 048
     Dates: start: 20130114, end: 20130114
  2. SERTRALINE HYDROCHLORIDE [Concomitant]
     Indication: DEPRESSION
     Dosage: 1 DF, UNK
     Route: 048

REACTIONS (7)
  - Muscle tightness [Recovered/Resolved]
  - Musculoskeletal pain [Recovered/Resolved]
  - Pain [Recovered/Resolved]
  - Arthralgia [Recovered/Resolved]
  - Vomiting [Recovered/Resolved]
  - Nausea [Recovered/Resolved]
  - Dysgeusia [Recovered/Resolved]
